FAERS Safety Report 8019241-X (Version None)
Quarter: 2012Q1

REPORT INFORMATION
  Report Type: 
  Country: None (occurrence: None)
  Receive Date: 20120103
  Receipt Date: 20111220
  Transmission Date: 20120608
  Serious: Yes (Hospitalization)
  Sender: FDA-Public Use
  Company Number: CA-JNJFOC-20111212795

PATIENT
  Sex: Female
  Weight: 54 kg

DRUGS (5)
  1. REMICADE [Suspect]
     Indication: CROHN'S DISEASE
     Dates: start: 20090201
  2. REMERON [Concomitant]
  3. VITAMIN D [Concomitant]
  4. GABAPENTIN [Concomitant]
  5. ASACOL [Concomitant]

REACTIONS (5)
  - FALL [None]
  - NEUROPATHY PERIPHERAL [None]
  - URINARY TRACT INFECTION [None]
  - CONFUSIONAL STATE [None]
  - ASTHENIA [None]
